FAERS Safety Report 19302915 (Version 1)
Quarter: 2021Q2

REPORT INFORMATION
  Report Type: Spontaneous
  Country: GB (occurrence: GB)
  Receive Date: 20210525
  Receipt Date: 20210525
  Transmission Date: 20210717
  Serious: Yes (Other)
  Sender: FDA-Public Use
  Company Number: GB-ACCORD-225816

PATIENT
  Age: 88 Year
  Sex: Female
  Weight: 53 kg

DRUGS (15)
  1. ATENOLOL/ATENOLOL HYDROCHLORIDE [Concomitant]
     Active Substance: ATENOLOL HYDROCHLORIDE
     Indication: ILL-DEFINED DISORDER
     Dosage: TAKE ONE TABLET DAILY
     Dates: start: 20201209
  2. ALENDRONATE SODIUM/ALENDRONIC ACID [Concomitant]
     Active Substance: ALENDRONATE SODIUM
     Indication: ILL-DEFINED DISORDER
     Dosage: TAKE ONE TABLET WEEKLY
     Dates: start: 20201027
  3. NICORANDIL [Concomitant]
     Active Substance: NICORANDIL
     Indication: ILL-DEFINED DISORDER
     Dosage: 1 TO BE TAKEN TWICE DAILY
     Dates: start: 20201209
  4. ZOPICLONE [Concomitant]
     Active Substance: ZOPICLONE
     Indication: ILL-DEFINED DISORDER
     Dosage: TAKE ONE AT NIGHT PRN
     Dates: start: 20210303, end: 20210317
  5. FUROSEMIDE. [Concomitant]
     Active Substance: FUROSEMIDE
     Indication: ILL-DEFINED DISORDER
     Dosage: TAKE ONE TABLET EACH MORNING
     Dates: start: 20210331
  6. FAMOTIDINE. [Concomitant]
     Active Substance: FAMOTIDINE
     Indication: ILL-DEFINED DISORDER
     Dosage: TAKE ONE DAILY AS DIRECTED
     Dates: start: 20210205
  7. MONOXIL XL [Concomitant]
     Indication: ILL-DEFINED DISORDER
     Dosage: TAKE HALF TABLET (30MG)EVERY MORNING
     Dates: start: 20200715
  8. ACIDEX [Concomitant]
     Indication: ILL-DEFINED DISORDER
     Dosage: TWO TO FOUR 5ML SPOONFULS 4 TIMES A DAY AFTER M...
     Dates: start: 20210113
  9. RAMIPRIL. [Suspect]
     Active Substance: RAMIPRIL
     Indication: PRODUCT USED FOR UNKNOWN INDICATION
     Dates: start: 20210510
  10. HYPROMELLOSE/HYPROMELLOSE PHTHALATE [Concomitant]
     Active Substance: HYPROMELLOSE PHTHALATE\HYPROMELLOSES
     Indication: ILL-DEFINED DISORDER
     Dosage: ONE DROP AS NEEDED
     Dates: start: 20200310
  11. OXYBUTYNIN. [Concomitant]
     Active Substance: OXYBUTYNIN CHLORIDE
     Indication: ILL-DEFINED DISORDER
     Dosage: TAKE ONE TWICE A DAY
     Dates: start: 20210127
  12. RAMIPRIL. [Concomitant]
     Active Substance: RAMIPRIL
     Indication: ILL-DEFINED DISORDER
     Dosage: TAKE ONE CAPSULE DAILY
     Dates: start: 20210422
  13. EDOXABAN [Concomitant]
     Active Substance: EDOXABAN TOSYLATE
     Indication: ILL-DEFINED DISORDER
     Dosage: TAKE ONE EVERY EVENING
     Dates: start: 20210113
  14. FLUVASTATIN [Concomitant]
     Active Substance: FLUVASTATIN SODIUM
     Indication: ILL-DEFINED DISORDER
     Dosage: TAKE ONE EARLY EVENING
     Dates: start: 20200715
  15. GLYCERYL TRINITRATE [Concomitant]
     Active Substance: NITROGLYCERIN
     Indication: ILL-DEFINED DISORDER
     Dosage: ONE PUFF AS NEEDED FOR CHEST PAIN
     Dates: start: 20210120

REACTIONS (2)
  - Balance disorder [Recovering/Resolving]
  - Cough [Recovering/Resolving]

NARRATIVE: CASE EVENT DATE: 20210510
